FAERS Safety Report 25667722 (Version 4)
Quarter: 2025Q4

REPORT INFORMATION
  Report Type: Report from Study
  Country: CN (occurrence: CN)
  Receive Date: 20250811
  Receipt Date: 20251117
  Transmission Date: 20260118
  Serious: Yes (Hospitalization, Other)
  Sender: ABBVIE
  Company Number: CN-ABBVIE-6406155

PATIENT
  Age: 33 Year
  Sex: Female
  Weight: 65 kg

DRUGS (9)
  1. RINVOQ [Suspect]
     Active Substance: UPADACITINIB
     Indication: Dermatitis atopic
     Dosage: FORM STRENGTH: 15 MILLIGRAM
     Route: 048
     Dates: start: 20251005
  2. RINVOQ [Suspect]
     Active Substance: UPADACITINIB
     Indication: Dermatitis atopic
     Route: 048
     Dates: start: 20250517, end: 20251004
  3. RINVOQ [Suspect]
     Active Substance: UPADACITINIB
     Indication: Dermatitis atopic
     Dosage: FORM STRENGTH: 15 MILLIGRAM
     Route: 048
     Dates: start: 20250424, end: 20250516
  4. Betamethasone dipropionate;Gentamicin sulfate [Concomitant]
     Indication: Dermatitis atopic
     Route: 061
     Dates: start: 20250424, end: 20250430
  5. DOXYCYCLINE HYCLATE [Concomitant]
     Active Substance: DOXYCYCLINE HYCLATE
     Indication: Dermatitis atopic
     Dosage: ENTERIC COATED CAPSULES
     Route: 048
     Dates: start: 20250424, end: 20250430
  6. Pentavitamin,Licorice and Chlorphenamine Maleate Capsules [Concomitant]
     Indication: Dermatitis atopic
     Route: 048
     Dates: start: 20250517, end: 20250614
  7. Pentavitamin,Licorice and Chlorphenamine Maleate Capsules [Concomitant]
     Indication: Dermatitis atopic
     Route: 048
     Dates: start: 20250424, end: 20250515
  8. Pentavitamin,Licorice and Chlorphenamine Maleate Capsules [Concomitant]
     Indication: Dermatitis atopic
     Dosage: LAST ADMIN DATE; 2025
     Route: 048
     Dates: start: 20250806
  9. NADIFLOXACIN [Concomitant]
     Active Substance: NADIFLOXACIN
     Indication: Dermatitis atopic
     Dosage: LAST ADMIN DATE: 2025
     Route: 061
     Dates: start: 20251005

REACTIONS (5)
  - Breast mass [Recovering/Resolving]
  - Pharyngitis [Recovered/Resolved]
  - Back pain [Recovered/Resolved]
  - Primary hyperthyroidism [Recovering/Resolving]
  - Breast cancer female [Recovering/Resolving]

NARRATIVE: CASE EVENT DATE: 20250424
